FAERS Safety Report 17779325 (Version 2)
Quarter: 2020Q2

REPORT INFORMATION
  Report Type: Spontaneous
  Country: FR (occurrence: FR)
  Receive Date: 20200513
  Receipt Date: 20200625
  Transmission Date: 20200714
  Serious: Yes (Other)
  Sender: FDA-Public Use
  Company Number: FR-BAYER-2020-084260

PATIENT
  Age: 69 Year
  Sex: Male

DRUGS (1)
  1. VITRAKVI [Suspect]
     Active Substance: LAROTRECTINIB
     Indication: ACUTE MYELOID LEUKAEMIA

REACTIONS (4)
  - Fibrosis [None]
  - Product use in unapproved indication [None]
  - Off label use [None]
  - Lung disorder [None]
